FAERS Safety Report 6371000-X (Version None)
Quarter: 2009Q3

REPORT INFORMATION
  Report Type: 
  Country: None (occurrence: None)
  Receive Date: 20090923
  Receipt Date: 20090910
  Transmission Date: 20100115
  Serious: Yes (Hospitalization, Other)
  Sender: FDA-Public Use
  Company Number: US-PFIZER INC-2009267863

PATIENT
  Sex: Male
  Weight: 110.67 kg

DRUGS (1)
  1. HALCION [Suspect]
     Dosage: 0.25 MG, 2X/DAY
     Route: 048
     Dates: start: 19820101

REACTIONS (4)
  - CAROTID ARTERY OCCLUSION [None]
  - DRUG DOSE OMISSION [None]
  - SWOLLEN TONGUE [None]
  - TONGUE DISORDER [None]
